FAERS Safety Report 6596410-7 (Version None)
Quarter: 2010Q1

REPORT INFORMATION
  Report Type: 
  Country: None (occurrence: None)
  Receive Date: 20100222
  Receipt Date: 20100222
  Transmission Date: 20100710
  Serious: Yes (Hospitalization)
  Sender: FDA-Public Use
  Company Number: None

PATIENT
  Sex: Male
  Weight: 71.6 kg

DRUGS (6)
  1. CISPLATIN [Suspect]
     Dosage: 380 MG
  2. ETOPOSIDE [Suspect]
     Dosage: 912 MG
  3. ALPRAZOLAM [Concomitant]
  4. ESOMEPRAZOLE [Concomitant]
  5. FLUOXETINE [Concomitant]
  6. NICORETTE [Concomitant]

REACTIONS (3)
  - BACK PAIN [None]
  - PRODUCTIVE COUGH [None]
  - PULMONARY EMBOLISM [None]
